FAERS Safety Report 20325018 (Version 4)
Quarter: 2022Q1

REPORT INFORMATION
  Report Type: Spontaneous
  Country: IT (occurrence: IT)
  Receive Date: 20220111
  Receipt Date: 20220203
  Transmission Date: 20220423
  Serious: Yes (Hospitalization, Other)
  Sender: FDA-Public Use
  Company Number: IT-GILEAD-2021-0559522

PATIENT
  Age: 55 Year
  Sex: Female

DRUGS (1)
  1. YESCARTA [Suspect]
     Active Substance: AXICABTAGENE CILOLEUCEL
     Indication: Diffuse large B-cell lymphoma
     Dosage: 1 DOSAGE FORM, ONCE
     Route: 042
     Dates: start: 20220103, end: 20220103

REACTIONS (6)
  - Pneumonia bacterial [Unknown]
  - Somnolence [Recovered/Resolved]
  - Dysgraphia [Recovered/Resolved]
  - Aphasia [Recovered/Resolved]
  - Tremor [Recovering/Resolving]
  - Cytokine release syndrome [Recovered/Resolved]

NARRATIVE: CASE EVENT DATE: 20220104
